FAERS Safety Report 9762808 (Version 1)
Quarter: 2013Q4

REPORT INFORMATION
  Report Type: Report from Study
  Country: US (occurrence: US)
  Receive Date: 20131216
  Receipt Date: 20131216
  Transmission Date: 20140711
  Serious: Yes (Other)
  Sender: FDA-Public Use
  Company Number: US-009507513-1312USA004394

PATIENT
  Sex: 0

DRUGS (2)
  1. REBETOL [Suspect]
     Indication: HEPATITIS C
     Dosage: 1000-1200MG/DAY, QD
  2. SOFOSBUVIR [Suspect]
     Indication: HEPATITIS C
     Dosage: 400MG, QD

REACTIONS (1)
  - Anaemia [Unknown]
